FAERS Safety Report 4377336-6 (Version None)
Quarter: 2004Q2

REPORT INFORMATION
  Report Type: 
  Country: None (occurrence: None)
  Receive Date: 20040614
  Receipt Date: 20040614
  Transmission Date: 20050107
  Serious: Yes (Hospitalization)
  Sender: FDA-Public Use
  Company Number: None

PATIENT
  Age: 73 Year
  Sex: Female
  Weight: 90.7194 kg

DRUGS (5)
  1. BEXTRA [Suspect]
     Indication: ANKYLOSING SPONDYLITIS
     Dosage: ONE / DAY ORAL
     Route: 048
     Dates: start: 20031106, end: 20040531
  2. TRIAM/HCTZ 37.5-25 [Suspect]
     Indication: HYPERTENSION
     Dosage: ONE / DAY ORAL
     Route: 048
     Dates: start: 20040518, end: 20040531
  3. CITRACEL + D [Concomitant]
  4. CENTRUM A-Z [Concomitant]
  5. GLUCOSAMINE CHRONDRIN [Concomitant]

REACTIONS (7)
  - CHILLS [None]
  - EYE REDNESS [None]
  - FATIGUE [None]
  - INFLUENZA LIKE ILLNESS [None]
  - PHARYNGOLARYNGEAL PAIN [None]
  - RASH GENERALISED [None]
  - TREMOR [None]
